FAERS Safety Report 21628663 (Version 3)
Quarter: 2022Q4

REPORT INFORMATION
  Report Type: Spontaneous
  Country: DK (occurrence: DK)
  Receive Date: 20221122
  Receipt Date: 20221205
  Transmission Date: 20230113
  Serious: Yes (Death, Other)
  Sender: FDA-Public Use
  Company Number: DK-BIOVITRUM-2022DK13479

PATIENT
  Age: 81 Year
  Sex: Male

DRUGS (2)
  1. DOPTELET [Suspect]
     Active Substance: AVATROMBOPAG MALEATE
     Indication: Immune thrombocytopenia
     Dates: start: 20220912
  2. DOPTELET [Suspect]
     Active Substance: AVATROMBOPAG MALEATE
     Dates: start: 20220918

REACTIONS (4)
  - Asthenia [Fatal]
  - Paraparesis [Fatal]
  - Myelitis transverse [Unknown]
  - Spinal stroke [Unknown]

NARRATIVE: CASE EVENT DATE: 20220918
